FAERS Safety Report 22623005 (Version 1)
Quarter: 2023Q2

REPORT INFORMATION
  Report Type: Spontaneous
  Country: US (occurrence: None)
  Receive Date: 20230621
  Receipt Date: 20230621
  Transmission Date: 20230721
  Serious: No
  Sender: FDA-Public Use
  Company Number: US-ARIS GLOBAL-VER202303-000169

PATIENT
  Sex: Female

DRUGS (1)
  1. SUCRALFATE [Suspect]
     Active Substance: SUCRALFATE
     Indication: Nausea
     Dosage: 10 ML (THE PATIENT TOOK TWO DOSES; ONE IN THE MORNING AND ONE A COUPLE OF HOURS LATER)
     Route: 048
     Dates: start: 20230313, end: 20230313

REACTIONS (8)
  - Fatigue [Unknown]
  - Anxiety [Unknown]
  - Feeling abnormal [Unknown]
  - Bedridden [Unknown]
  - Nausea [Unknown]
  - Condition aggravated [Unknown]
  - Dizziness [Unknown]
  - Drug ineffective for unapproved indication [Unknown]

NARRATIVE: CASE EVENT DATE: 20230313
